FAERS Safety Report 20468128 (Version 1)
Quarter: 2022Q1

REPORT INFORMATION
  Report Type: Other
  Country: KR (occurrence: None)
  Receive Date: 20220214
  Receipt Date: 20220214
  Transmission Date: 20220423
  Serious: Yes (Other)
  Sender: FDA-Public Use
  Company Number: KR-ROCHE-3021554

PATIENT

DRUGS (2)
  1. BEVACIZUMAB [Suspect]
     Active Substance: BEVACIZUMAB
     Indication: Glioma
     Route: 042
  2. IRINOTECAN [Suspect]
     Active Substance: IRINOTECAN
     Indication: Glioma
     Dosage: 340 MG/M2 OR 125 MG/M2
     Route: 065

REACTIONS (9)
  - Neutropenia [Unknown]
  - Thrombocytopenia [Unknown]
  - Seizure [Unknown]
  - Cerebral infarction [Unknown]
  - Deep vein thrombosis [Unknown]
  - Haemorrhage intracranial [Unknown]
  - Diarrhoea [Unknown]
  - Hypertension [Unknown]
  - Pyrexia [Unknown]
